FAERS Safety Report 17339869 (Version 2)
Quarter: 2020Q3

REPORT INFORMATION
  Report Type: Spontaneous
  Country: CA (occurrence: CA)
  Receive Date: 20200129
  Receipt Date: 20200721
  Transmission Date: 20201102
  Serious: Yes (Other)
  Sender: FDA-Public Use
  Company Number: CA-APOTEX-2020AP006984

PATIENT
  Sex: Female

DRUGS (1)
  1. APO?LEVOCARB ? TAB 25MG/250MG [Suspect]
     Active Substance: CARBIDOPA\LEVODOPA
     Indication: PARKINSON^S DISEASE
     Dosage: UNK
     Route: 065

REACTIONS (4)
  - Product use complaint [Unknown]
  - Choking [Unknown]
  - Product administration error [Unknown]
  - Product size issue [Unknown]
